FAERS Safety Report 20572903 (Version 4)
Quarter: 2022Q3

REPORT INFORMATION
  Report Type: Report from Study
  Country: US (occurrence: US)
  Receive Date: 20220309
  Receipt Date: 20220824
  Transmission Date: 20221027
  Serious: Yes (Hospitalization, Other)
  Sender: FDA-Public Use
  Company Number: US-TAKEDA-US202013263

PATIENT
  Age: 62 Year
  Sex: Female

DRUGS (1)
  1. HUMAN IMMUNOGLOBULIN G [Suspect]
     Active Substance: HUMAN IMMUNOGLOBULIN G
     Indication: Primary immunodeficiency syndrome
     Dosage: 25 GRAM, MONTHLY
     Route: 042

REACTIONS (10)
  - Pneumonia [Not Recovered/Not Resolved]
  - Procedural haemorrhage [Unknown]
  - Gastrectomy [Unknown]
  - Poor venous access [Unknown]
  - COVID-19 [Unknown]
  - Malnutrition [Unknown]
  - Fatigue [Unknown]
  - Feeding disorder [Not Recovered/Not Resolved]
  - Gastritis [Unknown]
  - Oesophageal motility disorder [Unknown]

NARRATIVE: CASE EVENT DATE: 20220101
